FAERS Safety Report 9528510 (Version 5)
Quarter: 2013Q4

REPORT INFORMATION
  Report Type: Spontaneous
  Country: US (occurrence: US)
  Receive Date: 20130917
  Receipt Date: 20131231
  Transmission Date: 20140711
  Serious: Yes (Death, Hospitalization, Disabling, Other)
  Sender: FDA-Public Use
  Company Number: US-009507513-1104USA02659

PATIENT
  Sex: Female
  Weight: 90.7 kg

DRUGS (2)
  1. FOSAMAX [Suspect]
     Dosage: 35 MG, UNK
     Route: 048
  2. ALENDRONATE SODIUM [Suspect]
     Dosage: 70 MG, QW
     Route: 048

REACTIONS (18)
  - Femur fracture [Not Recovered/Not Resolved]
  - Femur fracture [Unknown]
  - Tibia fracture [Recovered/Resolved]
  - Femur fracture [Unknown]
  - Open reduction of fracture [Unknown]
  - Cholecystectomy [Unknown]
  - Death [Fatal]
  - Osteopetrosis [Unknown]
  - Arthritis [Unknown]
  - Lower limb fracture [Unknown]
  - Hypertension [Unknown]
  - Diabetes mellitus [Unknown]
  - Deep vein thrombosis [Unknown]
  - Eye operation [Unknown]
  - Hysterectomy [Unknown]
  - Joint injury [Unknown]
  - Anaemia [Unknown]
  - Vertebroplasty [Unknown]
